FAERS Safety Report 25586679 (Version 1)
Quarter: 2025Q3

REPORT INFORMATION
  Report Type: Spontaneous
  Country: US (occurrence: US)
  Receive Date: 20250721
  Receipt Date: 20250721
  Transmission Date: 20251020
  Serious: Yes (Life-Threatening, Other)
  Sender: AMGEN
  Company Number: US-AMGEN-USASP2025141613

PATIENT
  Age: 75 Year
  Sex: Female

DRUGS (2)
  1. ETANERCEPT [Suspect]
     Active Substance: ETANERCEPT
     Indication: Rheumatoid arthritis
     Route: 065
  2. METHOTREXATE [Suspect]
     Active Substance: METHOTREXATE
     Indication: Rheumatoid arthritis
     Route: 065

REACTIONS (12)
  - Shock [Unknown]
  - Renal failure [Unknown]
  - Leptospirosis [Unknown]
  - Liver injury [Unknown]
  - Acute kidney injury [Unknown]
  - Acute respiratory failure [Unknown]
  - Pneumonia bacterial [Unknown]
  - Autoimmune hepatitis [Unknown]
  - Bone marrow disorder [Unknown]
  - Arrhythmia [Unknown]
  - Anaemia [Unknown]
  - Thrombocytopenia [Unknown]
